FAERS Safety Report 8925344 (Version 5)
Quarter: 2013Q4

REPORT INFORMATION
  Report Type: Report from Study
  Country: CH (occurrence: CH)
  Receive Date: 20121126
  Receipt Date: 20131226
  Transmission Date: 20140711
  Serious: Yes (Hospitalization)
  Sender: FDA-Public Use
  Company Number: CH-MPIJNJ-2012-08252

PATIENT
  Sex: 0

DRUGS (2)
  1. VELCADE [Suspect]
     Indication: HAEMATOLOGICAL MALIGNANCY
     Dosage: 3.1 MG, UNK
     Route: 042
     Dates: start: 20120925, end: 20121102
  2. VIRACEPT [Suspect]
     Indication: HAEMATOLOGICAL MALIGNANCY
     Dosage: 2500 MG, UNK
     Route: 048
     Dates: start: 20120925, end: 20121112

REACTIONS (3)
  - Anal abscess [Recovered/Resolved]
  - Pneumonia [Unknown]
  - Pyrexia [Recovered/Resolved]
